FAERS Safety Report 5369070-0 (Version None)
Quarter: 2007Q2

REPORT INFORMATION
  Report Type: 
  Country: None (occurrence: None)
  Receive Date: 20070625
  Receipt Date: 20070109
  Transmission Date: 20071010
  Serious: Yes (Hospitalization, Other)
  Sender: FDA-Public Use
  Company Number: US-ASTRAZENECA-2007UW00338

PATIENT
  Age: 72 Year
  Sex: Male

DRUGS (6)
  1. CRESTOR [Suspect]
     Indication: BLOOD CHOLESTEROL INCREASED
     Route: 048
  2. CRESTOR [Suspect]
     Route: 048
  3. LIPITOR [Concomitant]
     Route: 048
  4. INSULIN [Concomitant]
  5. METFORMIN HCL [Concomitant]
  6. ACTOS [Concomitant]

REACTIONS (1)
  - RHABDOMYOLYSIS [None]
